FAERS Safety Report 10175887 (Version 3)
Quarter: 2014Q2

REPORT INFORMATION
  Report Type: Spontaneous
  Country: US (occurrence: US)
  Receive Date: 20140516
  Receipt Date: 20140605
  Transmission Date: 20141212
  Serious: No
  Sender: FDA-Public Use
  Company Number: US-BAYER-2014-072808

PATIENT
  Age: 41 Year
  Sex: Male

DRUGS (1)
  1. ANTIHEMOPHILIC FACTOR VIII (RECOMBINANT), SUCROSE FORMULATED [Suspect]
     Indication: IMMUNE TOLERANCE INDUCTION
     Dosage: 1000 IU/KG, TIW

REACTIONS (1)
  - No adverse event [Recovered/Resolved]
